FAERS Safety Report 7715940-5 (Version None)
Quarter: 2011Q3

REPORT INFORMATION
  Report Type: 
  Country: None (occurrence: None)
  Receive Date: 20110829
  Receipt Date: 20110816
  Transmission Date: 20111222
  Serious: Yes (Hospitalization, Other)
  Sender: FDA-Public Use
  Company Number: CA-ELI_LILLY_AND_COMPANY-CA201108005399

PATIENT
  Age: 81 Year
  Sex: Female

DRUGS (7)
  1. VITAMIN D [Concomitant]
  2. CENTRUM [Concomitant]
  3. ALPRAZOLAM [Concomitant]
  4. FORTEO [Suspect]
     Dosage: 20 UG, QD
     Route: 058
     Dates: start: 20110727
  5. CALTRATE PLUS [Concomitant]
  6. FORTEO [Suspect]
     Indication: OSTEOPOROSIS
     Dosage: 20 UG, QD
     Route: 058
     Dates: start: 20110415, end: 20110724
  7. FOSAMAX [Concomitant]

REACTIONS (2)
  - HEADACHE [None]
  - COGNITIVE DISORDER [None]
